FAERS Safety Report 8020433-4 (Version None)
Quarter: 2012Q1

REPORT INFORMATION
  Report Type: 
  Country: None (occurrence: None)
  Receive Date: 20120103
  Receipt Date: 20111228
  Transmission Date: 20120608
  Serious: Yes (Death)
  Sender: FDA-Public Use
  Company Number: US-TEVA-315205USA

PATIENT
  Age: 49 Year
  Sex: Male

DRUGS (3)
  1. COPAXONE [Suspect]
     Indication: MULTIPLE SCLEROSIS
     Dosage: 20 MILLIGRAM;
     Route: 058
     Dates: end: 20110409
  2. BACLOFEN [Suspect]
  3. OTHER UNSPECIFIED MEDICATION [Suspect]

REACTIONS (1)
  - MULTIPLE DRUG OVERDOSE [None]
